FAERS Safety Report 10229723 (Version 1)
Quarter: 2014Q2

REPORT INFORMATION
  Report Type: Spontaneous
  Country: US (occurrence: None)
  Receive Date: 20140610
  Receipt Date: 20140610
  Transmission Date: 20141212
  Serious: Yes (Disabling)
  Sender: FDA-Public Use
  Company Number: None

PATIENT
  Age: 3 Year
  Sex: Female
  Weight: 16.5 kg

DRUGS (7)
  1. LEVETIRACETAM [Suspect]
     Indication: EPILEPSY
     Dosage: 5 ML BID ORAL
     Route: 048
  2. LEVETIRACETAM [Suspect]
     Indication: CONGENITAL HYDROCEPHALUS
     Dosage: 5 ML BID ORAL
     Route: 048
  3. LEVETIRACETAM [Suspect]
     Indication: CYTOGENETIC ABNORMALITY
     Dosage: 5 ML BID ORAL
     Route: 048
  4. ZONISAMIDE [Concomitant]
  5. PYRIDOXINE [Concomitant]
  6. LORAZEPAM [Concomitant]
  7. MIDAZOLAM [Concomitant]

REACTIONS (2)
  - Convulsion [None]
  - Product substitution issue [None]
